FAERS Safety Report 21045267 (Version 2)
Quarter: 2022Q4

REPORT INFORMATION
  Report Type: Spontaneous
  Country: US (occurrence: US)
  Receive Date: 20220705
  Receipt Date: 20221027
  Transmission Date: 20230113
  Serious: No
  Sender: FDA-Public Use
  Company Number: US-drreddys-SPO/USA/22/0151879

PATIENT
  Sex: Female

DRUGS (2)
  1. SUMATRIPTAN [Suspect]
     Active Substance: SUMATRIPTAN
     Indication: Migraine
  2. SUMATRIPTAN [Suspect]
     Active Substance: SUMATRIPTAN

REACTIONS (2)
  - Product dose omission issue [Unknown]
  - Device malfunction [Unknown]
